FAERS Safety Report 23966047 (Version 1)
Quarter: 2024Q2

REPORT INFORMATION
  Report Type: Spontaneous
  Country: US (occurrence: None)
  Receive Date: 20240611
  Receipt Date: 20240611
  Transmission Date: 20240716
  Serious: Yes (Death)
  Sender: FDA-Public Use
  Company Number: None

PATIENT
  Age: 81 Year
  Sex: Male

DRUGS (2)
  1. RELYVRIO [Suspect]
     Active Substance: SODIUM PHENYLBUTYRATE\TAURURSODIOL
     Indication: Amyotrophic lateral sclerosis
     Dosage: OTHER QUANTITY : 1 PACKET;?FREQUENCY : TWICE A DAY;?
     Route: 048
     Dates: start: 202306
  2. RADICAVA [Concomitant]
     Active Substance: EDARAVONE

REACTIONS (1)
  - Death [None]

NARRATIVE: CASE EVENT DATE: 20240524
